FAERS Safety Report 6005968-8 (Version None)
Quarter: 2008Q4

REPORT INFORMATION
  Report Type: 
  Country: None (occurrence: None)
  Receive Date: 20081217
  Receipt Date: 20081208
  Transmission Date: 20090506
  Serious: Yes (Hospitalization)
  Sender: FDA-Public Use
  Company Number: PHBS2008IT06651

PATIENT
  Age: 50 Year
  Sex: Female

DRUGS (2)
  1. ZOLEDRONIC ACID [Suspect]
     Indication: BREAST CANCER METASTATIC
  2. CHEMOTHERAPEUTICS NOS [Suspect]
     Dosage: 6
     Dates: start: 20060401, end: 20061101

REACTIONS (9)
  - BIOPSY SKIN [None]
  - DERMATOMYOSITIS [None]
  - DRUG ERUPTION [None]
  - ERYTHEMA [None]
  - OEDEMA [None]
  - RASH [None]
  - RASH PAPULAR [None]
  - SKIN NECROSIS [None]
  - TELANGIECTASIA [None]
